FAERS Safety Report 23309592 (Version 1)
Quarter: 2023Q4

REPORT INFORMATION
  Report Type: Spontaneous
  Country: None (occurrence: FR)
  Receive Date: 20231218
  Receipt Date: 20231218
  Transmission Date: 20240109
  Serious: Yes (Hospitalization)
  Sender: FDA-Public Use
  Company Number: FR-B.Braun Medical Inc.-2149498

PATIENT
  Age: 71 Year
  Sex: Female
  Weight: 43.5 kg

DRUGS (6)
  1. METRONIDAZOLE [Suspect]
     Active Substance: METRONIDAZOLE
  2. DAPTOMYCIN [Suspect]
     Active Substance: DAPTOMYCIN
  3. PIPERACILLIN AND TAZOBACTAM [Suspect]
     Active Substance: PIPERACILLIN SODIUM\TAZOBACTAM SODIUM
  4. CEFTRIAXONE [Suspect]
     Active Substance: CEFTRIAXONE\CEFTRIAXONE SODIUM
  5. GENTAMICIN [Suspect]
     Active Substance: GENTAMICIN
  6. AMOXICILLIN [Suspect]
     Active Substance: AMOXICILLIN

REACTIONS (1)
  - Clostridium colitis [None]
